FAERS Safety Report 6600229-8 (Version None)
Quarter: 2010Q1

REPORT INFORMATION
  Report Type: 
  Country: None (occurrence: None)
  Receive Date: 20100224
  Receipt Date: 20100222
  Transmission Date: 20100710
  Serious: Yes (Death, Life-Threatening, Hospitalization)
  Sender: FDA-Public Use
  Company Number: TW-ROXANE LABORATORIES, INC.-2010-RO-00184RO

PATIENT
  Age: 13 Month
  Sex: Male

DRUGS (12)
  1. METHOTREXATE [Suspect]
     Indication: ACUTE LYMPHOCYTIC LEUKAEMIA
     Route: 037
  2. PREDNISOLONE [Suspect]
     Indication: ACUTE LYMPHOCYTIC LEUKAEMIA
     Route: 048
  3. VINCRISTINE [Suspect]
     Indication: ACUTE LYMPHOCYTIC LEUKAEMIA
  4. IDARUBICIN HCL [Suspect]
     Indication: ACUTE LYMPHOCYTIC LEUKAEMIA
  5. L-ASPARGINASE [Suspect]
     Indication: ACUTE LYMPHOCYTIC LEUKAEMIA
  6. CYTOSINE ARABINOSIDE [Suspect]
     Indication: ACUTE LYMPHOCYTIC LEUKAEMIA
     Route: 037
  7. HYDROCORTISONE [Suspect]
     Indication: ACUTE LYMPHOCYTIC LEUKAEMIA
     Route: 037
  8. PHENYTOIN [Concomitant]
     Indication: CAECITIS
  9. LACTULOSE [Concomitant]
     Indication: HYPERAMMONAEMIC ENCEPHALOPATHY
  10. NEOMYCIN [Concomitant]
     Indication: HYPERAMMONAEMIC ENCEPHALOPATHY
  11. BENZOATE [Concomitant]
     Indication: HYPERAMMONAEMIC ENCEPHALOPATHY
  12. L-CARNITINE [Concomitant]
     Indication: HYPERAMMONAEMIC ENCEPHALOPATHY

REACTIONS (3)
  - CAECITIS [None]
  - CARDIOPULMONARY FAILURE [None]
  - HYPERAMMONAEMIC ENCEPHALOPATHY [None]
